FAERS Safety Report 9905573 (Version 1)
Quarter: 2014Q1

REPORT INFORMATION
  Report Type: Spontaneous
  Country: GB (occurrence: GB)
  Receive Date: 20140218
  Receipt Date: 20140218
  Transmission Date: 20141002
  Serious: Yes (Other)
  Sender: FDA-Public Use
  Company Number: GB-GLAXOSMITHKLINE-B0968948A

PATIENT
  Age: 66 Year
  Sex: Female
  Weight: 72.6 kg

DRUGS (4)
  1. MALARONE [Suspect]
  2. BALNEUM [Concomitant]
     Dates: start: 20131015, end: 20131112
  3. DERMOL (UK) [Concomitant]
     Dates: start: 20131015, end: 20131112
  4. BETAMETHASONE VALERATE [Concomitant]
     Dates: end: 20131216

REACTIONS (1)
  - Eczema [Recovering/Resolving]
